FAERS Safety Report 11081582 (Version 1)
Quarter: 2015Q2

REPORT INFORMATION
  Report Type: Spontaneous
  Country: US (occurrence: US)
  Receive Date: 20150501
  Receipt Date: 20150501
  Transmission Date: 20150821
  Serious: Yes (Hospitalization, Other)
  Sender: FDA-Public Use
  Company Number: US-JNJFOC-20150422121

PATIENT
  Age: 61 Year
  Sex: Male

DRUGS (34)
  1. NUCYNTA ER [Suspect]
     Active Substance: TAPENTADOL HYDROCHLORIDE
     Indication: PAIN
     Route: 048
     Dates: start: 20140604, end: 20150202
  2. PROVIGIL [Concomitant]
     Active Substance: MODAFINIL
     Indication: SLUGGISHNESS
     Route: 065
     Dates: start: 2000
  3. ROBAXIN [Concomitant]
     Active Substance: METHOCARBAMOL
     Indication: MUSCLE SPASMS
     Route: 048
     Dates: start: 2000
  4. LIMBREL [Concomitant]
     Active Substance: FLAVOCOXID
     Indication: INFLAMMATION
     Route: 048
     Dates: start: 2010
  5. TOPICAL PRODUCTS FOR JOINT AND MUSCULAR PAIN [Concomitant]
     Indication: PAIN
     Route: 061
     Dates: start: 2000
  6. BUSPAR [Concomitant]
     Active Substance: BUSPIRONE HYDROCHLORIDE
     Indication: ANXIETY
     Route: 048
     Dates: start: 20140720
  7. PROVIGIL [Concomitant]
     Active Substance: MODAFINIL
     Indication: SOMNOLENCE
     Route: 065
     Dates: start: 2000
  8. ENALAPRIL [Concomitant]
     Active Substance: ENALAPRIL
     Indication: BLOOD PRESSURE ABNORMAL
     Route: 048
     Dates: start: 2006
  9. VITAMIN B12 [Concomitant]
     Active Substance: CYANOCOBALAMIN
     Indication: VITAMIN SUPPLEMENTATION
     Route: 048
     Dates: start: 1985
  10. ANTIALLERGIC AGENTS, EXCL CORTICOSTEROIDS [Concomitant]
     Active Substance: UNSPECIFIED INGREDIENT
     Indication: HYPERSENSITIVITY
     Route: 048
     Dates: start: 1985
  11. NUCYNTA ER [Suspect]
     Active Substance: TAPENTADOL HYDROCHLORIDE
     Indication: PAIN
     Route: 048
     Dates: start: 20150301, end: 20150331
  12. PROVIGIL [Concomitant]
     Active Substance: MODAFINIL
     Indication: SLUGGISHNESS
     Route: 065
  13. DULCOLAX STOOL SOFTENER [Concomitant]
     Active Substance: DOCUSATE SODIUM
     Indication: CONSTIPATION
     Route: 048
     Dates: start: 2010
  14. PRAVASTATIN [Concomitant]
     Active Substance: PRAVASTATIN\PRAVASTATIN SODIUM
     Indication: BLOOD CHOLESTEROL ABNORMAL
     Route: 048
     Dates: start: 2006
  15. MULTIVITAMINS, COMBINATIONS [Concomitant]
     Indication: VITAMIN SUPPLEMENTATION
     Route: 048
  16. ZANTAC [Concomitant]
     Active Substance: RANITIDINE HYDROCHLORIDE
     Indication: GASTROINTESTINAL DISORDER
     Route: 065
     Dates: start: 2008
  17. LEVMETAMFETAMINE [Concomitant]
     Active Substance: LEVMETAMFETAMINE
     Indication: PRODUCT USED FOR UNKNOWN INDICATION
     Route: 065
  18. PROVIGIL [Concomitant]
     Active Substance: MODAFINIL
     Indication: SOMNOLENCE
     Route: 065
  19. PRILOSEC [Concomitant]
     Active Substance: OMEPRAZOLE MAGNESIUM
     Indication: GASTROINTESTINAL DISORDER
     Route: 048
     Dates: start: 2008
  20. DICYCLOMINE [Concomitant]
     Active Substance: DICYCLOMINE HYDROCHLORIDE
     Indication: MUSCLE SPASMS
     Route: 048
     Dates: start: 2008
  21. VITAMIN D2 [Concomitant]
     Active Substance: ERGOCALCIFEROL
     Indication: VITAMIN SUPPLEMENTATION
     Route: 048
     Dates: start: 1985
  22. KLONOPIN [Concomitant]
     Active Substance: CLONAZEPAM
     Indication: SLEEP DISORDER
     Route: 065
  23. PHENERGAN [Concomitant]
     Active Substance: PROMETHAZINE HYDROCHLORIDE
     Indication: GASTRIC DISORDER
     Route: 065
     Dates: start: 201502
  24. OSTEO BI-FLEX [Concomitant]
     Active Substance: CHONDROITIN SULFATE A\GLUCOSAMINE
     Indication: ARTHROPATHY
     Route: 048
     Dates: start: 2000
  25. TOPICAL PRODUCTS FOR JOINT AND MUSCULAR PAIN [Concomitant]
     Indication: PAIN
     Route: 061
     Dates: start: 2000
  26. LINZESS [Concomitant]
     Active Substance: LINACLOTIDE
     Indication: CONSTIPATION
     Route: 048
     Dates: start: 2014
  27. SYNTHROID [Concomitant]
     Active Substance: LEVOTHYROXINE SODIUM
     Indication: THYROID DISORDER
     Route: 048
     Dates: start: 2000
  28. ASCORBIC ACID. [Concomitant]
     Active Substance: ASCORBIC ACID
     Indication: VITAMIN SUPPLEMENTATION
     Route: 065
     Dates: start: 1985
  29. FISH OIL [Concomitant]
     Active Substance: FISH OIL
     Indication: VITAMIN SUPPLEMENTATION
     Route: 048
     Dates: start: 1985
  30. LYRICA [Concomitant]
     Active Substance: PREGABALIN
     Indication: NEURALGIA
     Route: 065
     Dates: start: 2000
  31. TYLENOL [Concomitant]
     Active Substance: ACETAMINOPHEN
     Indication: PAIN
     Route: 048
     Dates: start: 2000
  32. TOPICAL PRODUCTS FOR JOINT AND MUSCULAR PAIN [Concomitant]
     Indication: PAIN
     Route: 061
     Dates: start: 2000
  33. ERGOCALCIFEROL/CALCIUM PHOSP/CALCIUM SOD LACT [Concomitant]
     Indication: VITAMIN SUPPLEMENTATION
     Route: 048
     Dates: start: 1985
  34. TOPICAL PRODUCTS FOR JOINT AND MUSCULAR PAIN [Concomitant]
     Indication: PAIN
     Route: 061
     Dates: start: 2000

REACTIONS (14)
  - Acute kidney injury [Recovered/Resolved]
  - Acute kidney injury [Recovered/Resolved]
  - Fall [Recovered/Resolved]
  - Rectal prolapse [Not Recovered/Not Resolved]
  - Acute kidney injury [Unknown]
  - Intervertebral disc protrusion [Not Recovered/Not Resolved]
  - Fall [Recovered/Resolved]
  - Somnolence [Not Recovered/Not Resolved]
  - Infection [Unknown]
  - Fall [Unknown]
  - Opiates positive [Unknown]
  - White blood cell count increased [Unknown]
  - Muscular weakness [Recovered/Resolved]
  - Blood gases abnormal [Recovering/Resolving]

NARRATIVE: CASE EVENT DATE: 20140604
